FAERS Safety Report 12954275 (Version 1)
Quarter: 2016Q4

REPORT INFORMATION
  Report Type: Other
  Country: GB (occurrence: GB)
  Receive Date: 20161118
  Receipt Date: 20161118
  Transmission Date: 20170207
  Serious: Yes (Hospitalization)
  Sender: FDA-Public Use
  Company Number: GB-LUPIN PHARMACEUTICALS INC.-E2B_00004616

PATIENT
  Sex: Female

DRUGS (4)
  1. LOSARTAN. [Suspect]
     Active Substance: LOSARTAN
     Indication: HYPERTENSION
     Dosage: 50 MG
     Route: 065
  2. LOSARTAN. [Suspect]
     Active Substance: LOSARTAN
     Dosage: 75 MG
     Route: 065
     Dates: start: 20151023
  3. LOSARTAN. [Suspect]
     Active Substance: LOSARTAN
     Dosage: 75 MG
     Route: 065
     Dates: start: 20150812
  4. LOSARTAN. [Suspect]
     Active Substance: LOSARTAN
     Dosage: 100 MG
     Route: 065
     Dates: start: 20150825

REACTIONS (2)
  - Hypertension [Unknown]
  - Palpitations [Unknown]
